FAERS Safety Report 8934307 (Version 2)
Quarter: 2012Q4

REPORT INFORMATION
  Report Type: Report from Study
  Country: DE (occurrence: DE)
  Receive Date: 20121129
  Receipt Date: 20121212
  Transmission Date: 20130627
  Serious: Yes (Death, Hospitalization, Other)
  Sender: FDA-Public Use
  Company Number: DE-ROCHE-1160641

PATIENT
  Age: 71 Year
  Sex: Female
  Weight: 60 kg

DRUGS (14)
  1. BEVACIZUMAB [Suspect]
     Indication: BREAST CANCER
     Route: 042
  2. ENALAPRIL [Suspect]
     Indication: HYPERTENSION
     Route: 048
  3. ARCOXIA [Suspect]
     Indication: PAIN
     Route: 048
  4. TAVOR EXPIDET [Suspect]
     Indication: ANXIETY
     Route: 048
  5. PANTOZOL [Suspect]
     Indication: PROPHYLAXIS AGAINST GASTROINTESTINAL ULCER
     Route: 048
  6. REKAWAN [Suspect]
     Indication: PRODUCT USED FOR UNKNOWN INDICATION
     Route: 048
  7. HYDROMORPHONE [Suspect]
     Indication: PRODUCT USED FOR UNKNOWN INDICATION
     Route: 048
  8. PREDNISOLON [Suspect]
     Indication: PRODUCT USED FOR UNKNOWN INDICATION
     Route: 048
  9. VITAMIN B COMPLEX [Suspect]
     Indication: PRODUCT USED FOR UNKNOWN INDICATION
     Route: 048
  10. PERENTEROL [Suspect]
     Indication: DIARRHOEA
     Dosage: 2
     Route: 048
     Dates: start: 20121108
  11. FERROSANOL DUODENAL [Suspect]
     Indication: ANAEMIA
     Route: 048
     Dates: start: 20121108
  12. CALCIUM [Suspect]
     Indication: HYPOCALCAEMIA
     Route: 048
     Dates: start: 20121108
  13. METOCLOPRAMIDE [Suspect]
     Indication: SUBILEUS
     Route: 048
     Dates: start: 20121112, end: 20121117
  14. PACLITAXEL [Suspect]
     Indication: BREAST CANCER
     Route: 042

REACTIONS (6)
  - Femur fracture [Recovered/Resolved]
  - Metastases to bone [Unknown]
  - Diarrhoea [Not Recovered/Not Resolved]
  - Intestinal perforation [Fatal]
  - Cardiac arrest [Fatal]
  - Subileus [Not Recovered/Not Resolved]
